FAERS Safety Report 8557401-X (Version None)
Quarter: 2012Q3

REPORT INFORMATION
  Report Type: 
  Country: None (occurrence: None)
  Receive Date: 20120801
  Receipt Date: 20120723
  Transmission Date: 20120928
  Serious: Yes (Disabling, Other)
  Sender: FDA-Public Use
  Company Number: CN-PFIZER INC-2012184084

PATIENT
  Age: 59 Year
  Sex: Male

DRUGS (1)
  1. CORDARONE [Suspect]
     Indication: ATRIAL FIBRILLATION
     Dosage: 1 TABLET (100 MG) ONCE DAILY (EVERY 10 DAYS TEMPORARILY STOPPED THEN RE-STARTED)
     Route: 048
     Dates: start: 20050205, end: 20090322

REACTIONS (2)
  - LUNG INFECTION [None]
  - PULMONARY FIBROSIS [None]
